FAERS Safety Report 9013680 (Version 1)
Quarter: 2013Q1

REPORT INFORMATION
  Report Type: Spontaneous
  Country: FR (occurrence: FR)
  Receive Date: 20130115
  Receipt Date: 20130115
  Transmission Date: 20140127
  Serious: Yes (Other)
  Sender: FDA-Public Use
  Company Number: FR-009507513-1301FRA003665

PATIENT
  Sex: Female

DRUGS (1)
  1. ZOELY [Suspect]
     Indication: CONTRACEPTION
     Dosage: UNK
     Route: 048

REACTIONS (3)
  - Embolism venous [Unknown]
  - Sudden hearing loss [Not Recovered/Not Resolved]
  - Deafness unilateral [Not Recovered/Not Resolved]
